FAERS Safety Report 17828601 (Version 1)
Quarter: 2020Q2

REPORT INFORMATION
  Report Type: Spontaneous
  Country: US (occurrence: US)
  Receive Date: 20200527
  Receipt Date: 20200527
  Transmission Date: 20200714
  Serious: Yes (Death, Hospitalization, Other)
  Sender: FDA-Public Use
  Company Number: US-ADIENNEP-2020AD000305

PATIENT
  Age: 17 Year
  Sex: Male

DRUGS (5)
  1. CYCLOPHOSPHAMIDE. [Suspect]
     Active Substance: CYCLOPHOSPHAMIDE
     Indication: ALLOGENIC STEM CELL TRANSPLANTATION
  2. TACROLIMUS. [Suspect]
     Active Substance: TACROLIMUS
     Indication: GRAFT VERSUS HOST DISEASE IN SKIN
  3. PREDNISONE. [Suspect]
     Active Substance: PREDNISONE
     Indication: GRAFT VERSUS HOST DISEASE IN SKIN
  4. THIOTEPA. [Suspect]
     Active Substance: THIOTEPA
     Indication: ALLOGENIC STEM CELL TRANSPLANTATION
  5. CICLOSPORIN [Suspect]
     Active Substance: CYCLOSPORINE
     Indication: PROPHYLAXIS AGAINST GRAFT VERSUS HOST DISEASE

REACTIONS (15)
  - Graft versus host disease in skin [Recovered/Resolved]
  - Viral haemorrhagic cystitis [Unknown]
  - Adenovirus infection [Fatal]
  - Renal failure [Unknown]
  - Staphylococcal infection [Unknown]
  - Epstein-Barr virus infection reactivation [Unknown]
  - Graft versus host disease in liver [Unknown]
  - Capnocytophaga infection [Unknown]
  - BK virus infection [Unknown]
  - Oesophageal candidiasis [Unknown]
  - BK polyomavirus test positive [Unknown]
  - Mucosal inflammation [Unknown]
  - Adenovirus test positive [Unknown]
  - Cytomegalovirus infection reactivation [Unknown]
  - Graft versus host disease in skin [Unknown]
